FAERS Safety Report 5039368-4 (Version None)
Quarter: 2006Q2

REPORT INFORMATION
  Report Type: 
  Country: None (occurrence: None)
  Receive Date: 20060629
  Receipt Date: 20060327
  Transmission Date: 20061013
  Serious: Yes (Hospitalization)
  Sender: FDA-Public Use
  Company Number: JP-BRISTOL-MYERS SQUIBB COMPANY-13336821

PATIENT
  Age: 85 Year
  Sex: Female

DRUGS (4)
  1. SINEMET [Suspect]
     Indication: PARKINSON'S DISEASE
     Dosage: DOSE VALUE:  REPORTED AS BOTH 100 MG AND 200 MG TWICE DAILY.
     Route: 048
     Dates: start: 20020204
  2. MAGNESIUM OXIDE [Concomitant]
     Dates: start: 20020204
  3. ASPIRIN [Concomitant]
     Dates: start: 20020204
  4. NITRAZEPAM [Concomitant]
     Dates: start: 20020204

REACTIONS (1)
  - VERTIGO [None]
